FAERS Safety Report 11842656 (Version 2)
Quarter: 2015Q4

REPORT INFORMATION
  Report Type: Spontaneous
  Country: BR (occurrence: BR)
  Receive Date: 20151216
  Receipt Date: 20151230
  Transmission Date: 20160305
  Serious: Yes (Other)
  Sender: FDA-Public Use
  Company Number: ALCN2015BR007640

PATIENT
  Age: 22 Year
  Sex: Female

DRUGS (12)
  1. MAXIDEX [Suspect]
     Active Substance: DEXAMETHASONE
     Indication: EYELID OEDEMA
  2. CORTISONE [Concomitant]
     Active Substance: CORTISONE\HYDROCORTISONE
     Indication: VISION BLURRED
  3. MAXIDEX [Suspect]
     Active Substance: DEXAMETHASONE
     Indication: OCULAR HYPERAEMIA
  4. MAXIDEX [Suspect]
     Active Substance: DEXAMETHASONE
     Indication: RETINAL DISORDER
     Route: 047
  5. EPITEZAN [Concomitant]
     Indication: EYELID OEDEMA
  6. CORTISONE [Concomitant]
     Active Substance: CORTISONE\HYDROCORTISONE
     Indication: RETINAL DISORDER
     Route: 061
  7. EPITEZAN [Concomitant]
     Indication: RETINAL DISORDER
     Route: 061
  8. EPITEZAN [Concomitant]
     Indication: VISION BLURRED
  9. MAXIDEX [Suspect]
     Active Substance: DEXAMETHASONE
     Indication: VISION BLURRED
  10. CORTISONE [Concomitant]
     Active Substance: CORTISONE\HYDROCORTISONE
     Indication: OCULAR HYPERAEMIA
  11. CORTISONE [Concomitant]
     Active Substance: CORTISONE\HYDROCORTISONE
     Indication: EYELID OEDEMA
  12. EPITEZAN [Concomitant]
     Indication: OCULAR HYPERAEMIA

REACTIONS (6)
  - Drug ineffective [Not Recovered/Not Resolved]
  - Retinal disorder [Not Recovered/Not Resolved]
  - Product use issue [Not Recovered/Not Resolved]
  - Vision blurred [Not Recovered/Not Resolved]
  - Eyelid oedema [Not Recovered/Not Resolved]
  - Ocular hyperaemia [Not Recovered/Not Resolved]
